FAERS Safety Report 20489117 (Version 2)
Quarter: 2022Q3

REPORT INFORMATION
  Report Type: Spontaneous
  Country: US (occurrence: None)
  Receive Date: 20220218
  Receipt Date: 20220830
  Transmission Date: 20221027
  Serious: Yes (Other)
  Sender: FDA-Public Use
  Company Number: 2022A071035

PATIENT
  Age: 43 Year
  Sex: Female
  Weight: 91.2 kg

DRUGS (55)
  1. NEXIUM [Suspect]
     Active Substance: ESOMEPRAZOLE MAGNESIUM
     Indication: Gastrooesophageal reflux disease
     Route: 048
     Dates: start: 2011, end: 2019
  2. NEXIUM [Suspect]
     Active Substance: ESOMEPRAZOLE MAGNESIUM
     Indication: Gastrooesophageal reflux disease
     Route: 048
     Dates: start: 2011, end: 2019
  3. NEXIUM [Suspect]
     Active Substance: ESOMEPRAZOLE MAGNESIUM
     Indication: Gastrooesophageal reflux disease
     Route: 048
     Dates: start: 2011, end: 2019
  4. NEXIUM [Suspect]
     Active Substance: ESOMEPRAZOLE MAGNESIUM
     Indication: Gastrooesophageal reflux disease
     Route: 048
     Dates: start: 2011, end: 2019
  5. NEXIUM [Suspect]
     Active Substance: ESOMEPRAZOLE MAGNESIUM
     Indication: Gastrooesophageal reflux disease
     Dosage: GENERIC
     Route: 065
     Dates: start: 2018
  6. NEXIUM [Suspect]
     Active Substance: ESOMEPRAZOLE MAGNESIUM
     Indication: Gastrooesophageal reflux disease
     Dosage: GENERIC
     Route: 065
     Dates: start: 2018
  7. PRILOSEC [Suspect]
     Active Substance: OMEPRAZOLE MAGNESIUM
     Indication: Gastrooesophageal reflux disease
     Route: 048
     Dates: start: 2011, end: 2019
  8. PRILOSEC [Suspect]
     Active Substance: OMEPRAZOLE MAGNESIUM
     Indication: Gastrooesophageal reflux disease
     Route: 048
     Dates: start: 2011, end: 2019
  9. PRILOSEC [Suspect]
     Active Substance: OMEPRAZOLE MAGNESIUM
     Indication: Gastrooesophageal reflux disease
     Route: 048
     Dates: start: 2011, end: 2019
  10. PRILOSEC [Suspect]
     Active Substance: OMEPRAZOLE MAGNESIUM
     Indication: Gastrooesophageal reflux disease
     Route: 048
     Dates: start: 2011, end: 2019
  11. PRILOSEC [Suspect]
     Active Substance: OMEPRAZOLE MAGNESIUM
     Indication: Gastrooesophageal reflux disease
     Dosage: GENERIC
     Route: 065
     Dates: start: 2015, end: 2020
  12. PRILOSEC [Suspect]
     Active Substance: OMEPRAZOLE MAGNESIUM
     Indication: Gastrooesophageal reflux disease
     Dosage: GENERIC
     Route: 065
     Dates: start: 2015, end: 2020
  13. DEXILANT [Suspect]
     Active Substance: DEXLANSOPRAZOLE
     Indication: Gastrooesophageal reflux disease
     Route: 065
     Dates: start: 2011, end: 2019
  14. DEXILANT [Suspect]
     Active Substance: DEXLANSOPRAZOLE
     Indication: Gastrooesophageal reflux disease
     Route: 065
     Dates: start: 2011, end: 2019
  15. DEXILANT [Suspect]
     Active Substance: DEXLANSOPRAZOLE
     Indication: Gastrooesophageal reflux disease
     Route: 065
     Dates: start: 2011, end: 2019
  16. DEXILANT [Suspect]
     Active Substance: DEXLANSOPRAZOLE
     Indication: Gastrooesophageal reflux disease
     Route: 065
     Dates: start: 2011, end: 2019
  17. CEFUROXIME [Concomitant]
     Active Substance: CEFUROXIME
     Indication: Infection
     Route: 065
     Dates: start: 201502
  18. DOXYCYCLINE [Concomitant]
     Active Substance: DOXYCYCLINE
     Indication: Infection
     Route: 065
     Dates: start: 200312
  19. DOXYCYCLINE [Concomitant]
     Active Substance: DOXYCYCLINE
     Indication: Infection
     Route: 065
     Dates: start: 2013, end: 2017
  20. NEOMYCIN [Concomitant]
     Active Substance: NEOMYCIN
     Indication: Infection
     Route: 065
     Dates: start: 201803
  21. NEOMYCIN [Concomitant]
     Active Substance: NEOMYCIN
     Indication: Infection
     Route: 065
     Dates: start: 201903
  22. POLYMYXIN [Concomitant]
     Active Substance: POLYMYXIN
     Indication: Infection
     Route: 065
     Dates: start: 201803
  23. POLYMYXIN [Concomitant]
     Active Substance: POLYMYXIN
     Indication: Infection
     Route: 065
     Dates: start: 201903
  24. TRIMETHOPRIM [Concomitant]
     Active Substance: TRIMETHOPRIM
     Indication: Infection
     Route: 065
     Dates: start: 201111
  25. TRIMETHOPRIM [Concomitant]
     Active Substance: TRIMETHOPRIM
     Indication: Infection
     Route: 065
     Dates: start: 201202
  26. TRIMETHOPRIM [Concomitant]
     Active Substance: TRIMETHOPRIM
     Indication: Infection
     Route: 065
     Dates: start: 201207
  27. BACTRIM [Concomitant]
     Active Substance: SULFAMETHOXAZOLE\TRIMETHOPRIM
     Indication: Infection
     Route: 065
     Dates: start: 201408
  28. BACTRIM [Concomitant]
     Active Substance: SULFAMETHOXAZOLE\TRIMETHOPRIM
     Indication: Infection
     Route: 065
     Dates: start: 201506
  29. LISINOPRIL [Concomitant]
     Active Substance: LISINOPRIL
     Indication: Blood pressure abnormal
     Route: 065
     Dates: start: 2013, end: 2019
  30. FUROSEMIDE [Concomitant]
     Active Substance: FUROSEMIDE
     Indication: Renal disorder
     Route: 065
     Dates: start: 2018, end: 2019
  31. HYDROCHLOROTHIAZIDE [Concomitant]
     Active Substance: HYDROCHLOROTHIAZIDE
     Indication: Blood pressure abnormal
     Route: 065
     Dates: start: 2015, end: 2019
  32. AMITRIPTYLINE [Concomitant]
     Active Substance: AMITRIPTYLINE
     Indication: Depression
     Route: 065
     Dates: start: 200801
  33. AMITRIPTYLINE [Concomitant]
     Active Substance: AMITRIPTYLINE
     Indication: Depression
     Route: 065
     Dates: start: 201105
  34. HALOPERIDOL [Concomitant]
     Active Substance: HALOPERIDOL
     Indication: Depression
     Route: 065
     Dates: start: 200710
  35. BENADRYL [Concomitant]
     Active Substance: DIPHENHYDRAMINE HYDROCHLORIDE
     Indication: Hypersensitivity
  36. IBUPROFEN [Concomitant]
     Active Substance: IBUPROFEN
     Indication: Pain
  37. ACETAMINOPHEN [Concomitant]
     Active Substance: ACETAMINOPHEN
     Indication: Pain
  38. ASPIRIN [Concomitant]
     Active Substance: ASPIRIN
     Indication: Pain
  39. ASPIRIN [Concomitant]
     Active Substance: ASPIRIN
     Indication: Cardiac disorder
  40. TAGAMET [Concomitant]
     Active Substance: CIMETIDINE
  41. ZANTAC [Concomitant]
     Active Substance: RANITIDINE HYDROCHLORIDE
  42. BETAMETHASONE [Concomitant]
     Active Substance: BETAMETHASONE
  43. METHYLPHENIDATE [Concomitant]
     Active Substance: METHYLPHENIDATE
  44. MUPIROCIN [Concomitant]
     Active Substance: MUPIROCIN
  45. TRAZODONE [Concomitant]
     Active Substance: TRAZODONE HYDROCHLORIDE
  46. ONDANSETRON [Concomitant]
     Active Substance: ONDANSETRON
  47. QUETIAPINE [Concomitant]
     Active Substance: QUETIAPINE
  48. POLYMYXCIN [Concomitant]
  49. DARVOCET [Concomitant]
     Active Substance: ACETAMINOPHEN\PROPOXYPHENE HYDROCHLORIDE
  50. ESCITALOPRAM [Concomitant]
     Active Substance: ESCITALOPRAM OXALATE
  51. SUCRALFATE [Concomitant]
     Active Substance: SUCRALFATE
  52. PRAZOSIN [Concomitant]
     Active Substance: PRAZOSIN
  53. CARISOPRODOL [Concomitant]
     Active Substance: CARISOPRODOL
  54. NADOLOL [Concomitant]
     Active Substance: NADOLOL
  55. METHYLPREDNISOLONE [Concomitant]
     Active Substance: METHYLPREDNISOLONE

REACTIONS (1)
  - Acute kidney injury [Not Recovered/Not Resolved]

NARRATIVE: CASE EVENT DATE: 20150101
